FAERS Safety Report 10380796 (Version 1)
Quarter: 2014Q1

REPORT INFORMATION
  Report Type: Spontaneous
  Country: US (occurrence: None)
  Receive Date: 20140306
  Receipt Date: 20140306
  Transmission Date: 20141002
  Serious: Yes (Hospitalization)
  Sender: FDA-Public Use
  Company Number: 163-21880-13034485

PATIENT
  Age: 88 Year
  Sex: Male
  Weight: 64.86 kg

DRUGS (16)
  1. REVLIMID (LENALIDOMIDE) (25 MILLIGRAM, CAPSULES) [Suspect]
     Indication: PLASMA CELL MYELOMA
     Route: 048
     Dates: start: 20130311
  2. DEXAMETHASONE(DEXAMETHASONE) [Concomitant]
  3. AMLODIPINE BESYLATE(AMLODIPINE BESILATE) [Concomitant]
  4. PLAVIX(CLOPIDOGREL SULFATE) [Concomitant]
  5. FLUOXETINE HCL(FLUOXETINE HYDROCHLORIDE) [Concomitant]
  6. FOLIC ACID(FOLIC ACID) [Concomitant]
  7. TANDEM LEVOTHYROXINE SODIUM(LEVOTHYROXINE SODIUM) [Concomitant]
  8. TAMSULOSIN HCL(TAMSULOSIN HYDROCHLORIDE) [Concomitant]
  9. OXYBUTYNIN CHLORIDE(OXYBUTYNIN HYDROCHLORIDE) [Concomitant]
  10. LOSARTAN POTASSIUM(LOSARTAN POTASSIUM) [Concomitant]
  11. ISOSORBIDE DINITRATE(ISOSORBIDE DINITRATE) [Concomitant]
  12. RANITIDINE HCL(RANITIDINE HYDROCHLORIDE) [Concomitant]
  13. SIMVASTATIN(SIMVASTATIN) [Concomitant]
  14. CYTRA-2 [Concomitant]
  15. LEVOTHYROXINE SODIUM(LEVOTHYROXINE SODIUM) [Concomitant]
  16. FENTANYL (FENTANYL) [Concomitant]

REACTIONS (3)
  - Malaise [None]
  - Plasma cell myeloma [None]
  - Dysphagia [None]
